FAERS Safety Report 15109378 (Version 2)
Quarter: 2018Q3

REPORT INFORMATION
  Report Type: Report from Study
  Country: CZ (occurrence: CZ)
  Receive Date: 20180705
  Receipt Date: 20180712
  Transmission Date: 20181010
  Serious: Yes (Hospitalization)
  Sender: FDA-Public Use
  Company Number: CZ-ROCHE-1836700

PATIENT
  Age: 69 Year
  Sex: Female
  Weight: 67.2 kg

DRUGS (25)
  1. ALLOPURINOLUM [Concomitant]
     Indication: PROPHYLAXIS
     Route: 065
     Dates: start: 20160913, end: 20160927
  2. LACTULOSUM [Concomitant]
     Indication: CONSTIPATION PROPHYLAXIS
     Route: 065
     Dates: start: 20160922, end: 20160922
  3. SULFAMETHOXAZOLE/TRIMETHOPRIM [Concomitant]
     Active Substance: SULFAMETHOXAZOLE\TRIMETHOPRIM
     Indication: INFECTION PROPHYLAXIS
     Route: 065
     Dates: start: 20161004, end: 20161008
  4. HYDROCORTISON [Concomitant]
     Active Substance: HYDROCORTISONE
     Indication: INFUSION RELATED REACTION
     Route: 065
     Dates: start: 20160920, end: 20160920
  5. INADINE [Concomitant]
     Route: 065
     Dates: start: 20160919, end: 20160924
  6. FILGRASTIMUM [Concomitant]
     Indication: PROPHYLAXIS
     Route: 065
     Dates: start: 20160927, end: 20161002
  7. VINCRISTINE [Suspect]
     Active Substance: VINCRISTINE
     Indication: B-CELL LYMPHOMA
     Dosage: THE MOST RECENT DOSE OF VINCRISTINE PRIOR TO THE ONSET OF THE EVENT WAS 2 MG ON 20/SEP/2016 AT 21:05
     Route: 042
     Dates: start: 20160920
  8. PARACETAMOLUM [Concomitant]
     Active Substance: ACETAMINOPHEN
     Indication: PREMEDICATION
     Route: 065
     Dates: start: 20160920, end: 20160920
  9. OMEPRAZOLUM [Concomitant]
     Indication: PROPHYLAXIS AGAINST GASTROINTESTINAL ULCER
     Route: 065
     Dates: start: 20160919, end: 20160923
  10. GRANISETRONUM [Concomitant]
     Indication: PROPHYLAXIS OF NAUSEA AND VOMITING
     Route: 065
     Dates: start: 20160920, end: 20160920
  11. GRANISETRONUM [Concomitant]
     Indication: VOMITING
     Route: 065
     Dates: start: 20160927, end: 20160927
  12. METAMIZOLUM NATRICUM [Concomitant]
     Indication: URINARY TRACT INFECTION
     Route: 065
     Dates: start: 20160928, end: 20160929
  13. FILGRASTIMUM [Concomitant]
     Indication: PROPHYLAXIS
     Route: 065
     Dates: start: 20160927, end: 20160927
  14. VENETOCLAX. [Suspect]
     Active Substance: VENETOCLAX
     Indication: B-CELL LYMPHOMA
     Dosage: THE MOST RECENT DOSE OF VENETOCLAX PRIOR TO THE ONSET OF THE EVENT WAS 800 MG ON 27/SEP/2016.
     Route: 048
     Dates: start: 20160923, end: 20160927
  15. RITUXIMAB. [Suspect]
     Active Substance: RITUXIMAB
     Indication: B-CELL LYMPHOMA
     Dosage: THE MOST RECENT DOSE OF RITUXIMAB PRIOR TO THE ONSET OF THE EVENT WAS 671 MG ON 20/SEP/2016 AT 13:50
     Route: 042
     Dates: start: 20160920
  16. DOXORUBICIN [Suspect]
     Active Substance: DOXORUBICIN
     Indication: B-CELL LYMPHOMA
     Dosage: THE MOST RECENT DOSE OF DOXORUBICIN PRIOR TO THE ONSET OF THE EVENT WAS 90 MG ON 20/SEP/2016 AT 21:1
     Route: 042
     Dates: start: 20160920
  17. KALII CHLORIDUM [Concomitant]
     Route: 065
     Dates: start: 20161001, end: 20161011
  18. KALII CHLORIDUM [Concomitant]
     Indication: PROPHYLAXIS
     Route: 065
     Dates: start: 20160920, end: 20160923
  19. HYDROCORTISON [Concomitant]
     Active Substance: HYDROCORTISONE
     Indication: PREMEDICATION
     Route: 065
     Dates: start: 20160920, end: 20160920
  20. BISULEPINIUM CHLORATUM [Concomitant]
     Indication: PREMEDICATION
     Route: 065
     Dates: start: 20160920, end: 20160920
  21. NORMAL SALINE [Concomitant]
     Active Substance: SODIUM CHLORIDE
     Indication: PROPHYLAXIS
     Route: 065
     Dates: start: 20160928, end: 20161003
  22. CYCLOPHOSPHAMIDE. [Suspect]
     Active Substance: CYCLOPHOSPHAMIDE
     Indication: B-CELL LYMPHOMA
     Dosage: THE MOST RECENT DOSE OF CYCLOPHOSPHAMIDE PRIOR TO THE ONSET OF THE EVENT WAS 1340 MG ON 20/SEP/2016
     Route: 042
     Dates: start: 20160920
  23. PREDNISONE. [Suspect]
     Active Substance: PREDNISONE
     Indication: B-CELL LYMPHOMA
     Dosage: THE MOST RECENT DOSE OF PREDNISONE PRIOR TO THE ONSET OF THE EVENT WAS 100 MG ON 24/SEP/2016.?UNIT D
     Route: 048
     Dates: start: 20160920
  24. BROMAZEPAMUM [Concomitant]
     Indication: PROPHYLAXIS
     Route: 065
     Dates: start: 20160920, end: 20160920
  25. METOCLOPRAMIDI HYDROCHLORIDUM [Concomitant]
     Indication: PROPHYLAXIS OF NAUSEA AND VOMITING
     Route: 065
     Dates: start: 20160923, end: 20160923

REACTIONS (1)
  - Bacterial sepsis [Recovered/Resolved]

NARRATIVE: CASE EVENT DATE: 20160928
